FAERS Safety Report 12767664 (Version 2)
Quarter: 2016Q4

REPORT INFORMATION
  Report Type: Spontaneous
  Country: US (occurrence: US)
  Receive Date: 20160921
  Receipt Date: 20161129
  Transmission Date: 20170207
  Serious: Yes (Death)
  Sender: FDA-Public Use
  Company Number: US-ALLERGAN-1668725US

PATIENT
  Age: 20 Year
  Sex: Female

DRUGS (3)
  1. AQUADEKS CHEWABLE TABLETS [Suspect]
     Active Substance: VITAMINS
     Dosage: UNK
     Dates: start: 20160715, end: 20160729
  2. SODIUM CHLORIDE. [Suspect]
     Active Substance: SODIUM CHLORIDE
     Indication: CYSTIC FIBROSIS
     Dosage: UNK UNK, BID
     Route: 055
     Dates: start: 20160613, end: 20160729
  3. AQUADEKS CHEWABLE TABLETS [Suspect]
     Active Substance: VITAMINS
     Indication: PRODUCT USED FOR UNKNOWN INDICATION
     Dosage: UNK
     Dates: start: 20160715, end: 20160729

REACTIONS (1)
  - Death [Fatal]
